FAERS Safety Report 25220688 (Version 1)
Quarter: 2025Q2

REPORT INFORMATION
  Report Type: Spontaneous
  Country: FR (occurrence: FR)
  Receive Date: 20250421
  Receipt Date: 20250421
  Transmission Date: 20250717
  Serious: Yes (Other)
  Sender: NOVARTIS
  Company Number: FR-002147023-NVSC2025FR062297

PATIENT
  Age: 71 Year
  Sex: Male

DRUGS (1)
  1. PLUVICTO [Suspect]
     Active Substance: LUTETIUM LU-177 VIPIVOTIDE TETRAXETAN
     Indication: Prostate cancer metastatic
     Route: 065
     Dates: start: 202301

REACTIONS (9)
  - Acute kidney injury [Unknown]
  - Thrombotic microangiopathy [Unknown]
  - Renal atrophy [Unknown]
  - Dyspnoea [Unknown]
  - Anaemia [Unknown]
  - Haematuria [Unknown]
  - Proteinuria [Unknown]
  - Fibrosis [Unknown]
  - Hypertension [Unknown]
